FAERS Safety Report 8208643-4 (Version None)
Quarter: 2012Q1

REPORT INFORMATION
  Report Type: 
  Country: None (occurrence: None)
  Receive Date: 20120314
  Receipt Date: 20120214
  Transmission Date: 20120608
  Serious: Yes (Hospitalization)
  Sender: FDA-Public Use
  Company Number: US-ROCHE-1046839

PATIENT
  Sex: Male

DRUGS (3)
  1. COPEGUS [Suspect]
     Indication: HEPATITIS C
     Dosage: DIVIDED DOSES.
     Dates: start: 20111113, end: 20120212
  2. PEGINTERFERON ALFA-2A [Suspect]
     Indication: HEPATITIS C
     Dates: start: 20111113, end: 20120212
  3. BOCEPREVIR [Suspect]
     Indication: HEPATITIS C
     Dates: end: 20120212

REACTIONS (3)
  - WHITE BLOOD CELL COUNT DECREASED [None]
  - CARDIAC DISORDER [None]
  - PSYCHOTIC DISORDER [None]
